FAERS Safety Report 6574985-1 (Version None)
Quarter: 2010Q1

REPORT INFORMATION
  Report Type: 
  Country: None (occurrence: None)
  Receive Date: 20100209
  Receipt Date: 20100115
  Transmission Date: 20100710
  Serious: Yes (Other)
  Sender: FDA-Public Use
  Company Number: US-ALEXION-A200900659

PATIENT
  Sex: Female

DRUGS (14)
  1. SOLIRIS [Suspect]
     Indication: PAROXYSMAL NOCTURNAL HAEMOGLOBINURIA
     Dosage: 600 MG, QW
     Route: 042
     Dates: start: 20090805, end: 20090903
  2. SOLIRIS [Suspect]
     Dosage: 900 MG, Q2W
     Route: 042
     Dates: start: 20090910
  3. PERCOCET [Concomitant]
     Indication: PAIN
     Dosage: 5/325 MG, 1-2 TABS, Q4H, PRN
     Route: 048
  4. IRON [Concomitant]
     Indication: ANAEMIA
     Dosage: 325 MG, QD
     Route: 048
  5. FOLIC ACID [Concomitant]
     Indication: PAROXYSMAL NOCTURNAL HAEMOGLOBINURIA
     Dosage: 1 MG, QD
     Route: 048
  6. MOTRIN [Concomitant]
     Dosage: 800 MG, QD
     Route: 048
     Dates: end: 20091218
  7. OMEPRAZOLE [Concomitant]
     Dosage: 20 MG, BID
     Route: 048
  8. COMPAZINE                          /00013302/ [Concomitant]
     Indication: NAUSEA
     Dosage: 10 MG, PRN
     Route: 048
  9. ATARAX [Concomitant]
     Indication: PRURITUS
     Dosage: 25 MG, PRN
     Route: 048
  10. RESTORIL                           /00393701/ [Concomitant]
     Indication: INSOMNIA
     Dosage: 30 MG, QD
  11. IMITREX                            /01044801/ [Concomitant]
     Indication: MIGRAINE
     Dosage: 50 MG, PRN
     Route: 047
  12. MULTIVITAMIN                       /00831701/ [Concomitant]
     Dosage: UNK
     Route: 048
  13. PEPCID [Concomitant]
     Dosage: 40 MG, UNK
     Route: 048
     Dates: end: 20091222
  14. ISOSORBIDE [Concomitant]
     Dosage: UNK
     Route: 048

REACTIONS (11)
  - APHASIA [None]
  - BLOOD LACTATE DEHYDROGENASE INCREASED [None]
  - CHILLS [None]
  - CONVULSION [None]
  - INFUSION RELATED REACTION [None]
  - PETIT MAL EPILEPSY [None]
  - PRESYNCOPE [None]
  - PRURITUS [None]
  - TREMOR [None]
  - UNRESPONSIVE TO STIMULI [None]
  - VOMITING [None]
